FAERS Safety Report 13590889 (Version 1)
Quarter: 2017Q2

REPORT INFORMATION
  Report Type: Spontaneous
  Country: FR (occurrence: FR)
  Receive Date: 20170529
  Receipt Date: 20170529
  Transmission Date: 20170830
  Serious: Yes (Hospitalization, Other)
  Sender: FDA-Public Use
  Company Number: FR-TEVA-773749ACC

PATIENT
  Age: 62 Year
  Sex: Female

DRUGS (9)
  1. MABTHERA [Suspect]
     Active Substance: RITUXIMAB
     Dosage: (6TH CYCLE, ONCE DAILY)
     Route: 041
     Dates: start: 20170328, end: 20170328
  2. CETIRIZINE [Concomitant]
     Active Substance: CETIRIZINE HYDROCHLORIDE
     Indication: PRODUCT USED FOR UNKNOWN INDICATION
     Dosage: 10 MILLIGRAM DAILY; (AT NOON)
     Route: 048
     Dates: start: 20170328, end: 20170329
  3. LEVACT [Suspect]
     Active Substance: BENDAMUSTINE HYDROCHLORIDE
     Dosage: (6TH CYCLE, ONCE DAILY)
     Route: 041
     Dates: start: 20170328, end: 20170329
  4. MABTHERA [Suspect]
     Active Substance: RITUXIMAB
     Indication: B-CELL LYMPHOMA STAGE IV
     Route: 041
  5. LEVACT [Suspect]
     Active Substance: BENDAMUSTINE HYDROCHLORIDE
     Indication: B-CELL LYMPHOMA STAGE IV
     Route: 041
  6. ONDANSETRON [Concomitant]
     Active Substance: ONDANSETRON
     Indication: PRODUCT USED FOR UNKNOWN INDICATION
     Dosage: 8 MG/4ML 8MG,(MORNING AND EVENING)
     Route: 042
     Dates: start: 20170328, end: 20170403
  7. ZELITREX [Concomitant]
     Active Substance: VALACYCLOVIR HYDROCHLORIDE
     Indication: PRODUCT USED FOR UNKNOWN INDICATION
     Dosage: 1000 MILLIGRAM DAILY; 500 MG,(1 TABLET MORNING AND EVENING)
     Route: 048
     Dates: start: 20161104
  8. PARACETAMOL [Concomitant]
     Active Substance: ACETAMINOPHEN
     Indication: PRODUCT USED FOR UNKNOWN INDICATION
     Dosage: 1G/100ML, AS NEEDED
     Route: 042
     Dates: start: 20160328
  9. NIVESTIM [Concomitant]
     Active Substance: FILGRASTIM
     Indication: PRODUCT USED FOR UNKNOWN INDICATION
     Dosage: 30 IU (INTERNATIONAL UNIT) DAILY; ONCE DAILY FOR 5 DAYS IF NEUTROPHILS COUNT WAS UNDER 1G/L
     Route: 058
     Dates: start: 20161104

REACTIONS (3)
  - Pyrexia [Unknown]
  - Skin reaction [Unknown]
  - Haemolytic anaemia [Recovering/Resolving]

NARRATIVE: CASE EVENT DATE: 20170329
